FAERS Safety Report 13008988 (Version 2)
Quarter: 2017Q2

REPORT INFORMATION
  Report Type: Spontaneous
  Country: JP (occurrence: JP)
  Receive Date: 20161208
  Receipt Date: 20170419
  Transmission Date: 20170830
  Serious: Yes (Death, Life-Threatening, Other)
  Sender: FDA-Public Use
  Company Number: JP-PFIZER INC-2016565602

PATIENT
  Age: 33 Year
  Sex: Male
  Weight: 121 kg

DRUGS (9)
  1. PROPOFOL. [Concomitant]
     Active Substance: PROPOFOL
     Dosage: 5 ML/HR, UNK
     Route: 042
     Dates: start: 20160724, end: 20160729
  2. GLUCONSAN K [Concomitant]
     Dosage: 12 MEQ, 1X/DAY
     Route: 048
     Dates: start: 20160727, end: 20160806
  3. PRECEDEX [Suspect]
     Active Substance: DEXMEDETOMIDINE HYDROCHLORIDE
     Indication: SEDATION
     Dosage: 8 ML/HR X 24 HR
     Route: 042
     Dates: start: 20160724, end: 20160801
  4. ROPION [Suspect]
     Active Substance: FLURBIPROFEN AXETIL
     Indication: ANALGESIC THERAPY
     Dosage: 50 MG, 1X/DAY
     Route: 042
     Dates: start: 20160728, end: 20160801
  5. SOL-MELCORT [Concomitant]
     Active Substance: METHYLPREDNISOLONE SODIUM SUCCINATE
     Dosage: 125 MG, UNK
     Route: 042
     Dates: start: 20160729, end: 20160801
  6. AMLODIPINE [Concomitant]
     Active Substance: AMLODIPINE BESYLATE
     Dosage: UNK, (5 MG TO 10 MG)
     Route: 048
     Dates: start: 20160727, end: 20160803
  7. NICARDIPINE HYDROCHLORIDE. [Suspect]
     Active Substance: NICARDIPINE HYDROCHLORIDE
     Indication: HYPERTENSION
     Dosage: 2 ML/HR (INCREASED/DECREASED ACCORDINGLY)
     Route: 041
     Dates: start: 20160725, end: 20160801
  8. SULBACILLIN [Suspect]
     Active Substance: AMPICILLIN SODIUM\SULBACTAM SODIUM
     Indication: INFECTION
     Dosage: 12 G, 1X/DAY
     Route: 042
     Dates: start: 20160725, end: 20160804
  9. LANSOPRAZOLE. [Concomitant]
     Active Substance: LANSOPRAZOLE
     Dosage: 30 MG, 1X/DAY
     Route: 048
     Dates: start: 20160727, end: 20160801

REACTIONS (1)
  - Rhabdomyolysis [Fatal]

NARRATIVE: CASE EVENT DATE: 20160801
